FAERS Safety Report 20936415 (Version 4)
Quarter: 2023Q2

REPORT INFORMATION
  Report Type: Report from Study
  Country: GB (occurrence: GB)
  Receive Date: 20220609
  Receipt Date: 20230530
  Transmission Date: 20230722
  Serious: Yes (Death, Hospitalization)
  Sender: FDA-Public Use
  Company Number: GB-CELLTRION INC.-2021GB001364

PATIENT

DRUGS (17)
  1. TRASTUZUMAB [Suspect]
     Active Substance: TRASTUZUMAB
     Indication: Breast cancer
     Dosage: 420 MILLIGRAM, EVERY 3 WEEKS,  CUMULATIVE DOSE 840MG
     Route: 042
     Dates: start: 20171129, end: 20180516
  2. TRASTUZUMAB [Suspect]
     Active Substance: TRASTUZUMAB
     Dosage: 420 MILLIGRAM, EVERY 3 WEEKS,  CUMULATIVE DOSE 840MG
     Route: 042
     Dates: start: 20171129, end: 20180516
  3. TRASTUZUMAB [Suspect]
     Active Substance: TRASTUZUMAB
     Dosage: 420 MILLIGRAM, EVERY 3 WEEKS,  CUMULATIVE DOSE 840MG
     Route: 042
     Dates: start: 20171129, end: 20180516
  4. TRASTUZUMAB [Suspect]
     Active Substance: TRASTUZUMAB
     Dosage: 420 MILLIGRAM, EVERY 3 WEEKS (CUMULATIVE DOSE: 7540.0 MG)
     Route: 042
     Dates: start: 20170815, end: 20170927
  5. TRASTUZUMAB [Suspect]
     Active Substance: TRASTUZUMAB
     Dosage: 420 MILLIGRAM, EVERY 3 WEEKS CUMULATIVE DOSE: 7540.0 MG)
     Route: 042
     Dates: start: 20170815, end: 20170927
  6. TRASTUZUMAB [Suspect]
     Active Substance: TRASTUZUMAB
     Dosage: 420 MILLIGRAM, EVERY 3 WEEKS CUMULATIVE DOSE: 7540.0 MG)
     Route: 042
     Dates: start: 20170815, end: 20170927
  7. TRASTUZUMAB [Suspect]
     Active Substance: TRASTUZUMAB
     Dosage: 567 MG EVERY 3 WEEKS
     Route: 042
     Dates: start: 20170720, end: 20170720
  8. TRASTUZUMAB [Suspect]
     Active Substance: TRASTUZUMAB
     Dosage: 567 MG EVERY 3 WEEKS
     Route: 042
     Dates: start: 20170720, end: 20170720
  9. TRASTUZUMAB [Suspect]
     Active Substance: TRASTUZUMAB
     Dosage: 567 MG EVERY 3 WEEKS
     Route: 042
     Dates: start: 20170720, end: 20170720
  10. ADO-TRASTUZUMAB EMTANSINE [Suspect]
     Active Substance: ADO-TRASTUZUMAB EMTANSINE
     Indication: Breast cancer
     Dosage: 270 MG, EVERY 3 WEEKS
     Route: 042
     Dates: start: 20171018, end: 20171108
  11. PERTUZUMAB [Suspect]
     Active Substance: PERTUZUMAB
     Indication: Breast cancer
     Dosage: 840 MILLIGRAM/INTRAVENOUS DRIP
     Route: 041
     Dates: start: 20170719, end: 20170719
  12. PERTUZUMAB [Suspect]
     Active Substance: PERTUZUMAB
     Dosage: 840 MILLIGRAM/INTRAVENOUS DRIP
     Route: 041
     Dates: start: 20170719, end: 20170719
  13. PERTUZUMAB [Suspect]
     Active Substance: PERTUZUMAB
     Dosage: 420 MILLIGRAM, EVERY 3 WEEKS, CUMULATIVE DOSE 840MG
     Route: 042
     Dates: start: 20170815, end: 20170927
  14. PERTUZUMAB [Suspect]
     Active Substance: PERTUZUMAB
     Dosage: 420 MILLIGRAM, EVERY 3 WEEKS,  CUMULATIVE DOSE 840MG
     Route: 042
     Dates: start: 20170815, end: 20170927
  15. CARBOPLATIN [Suspect]
     Active Substance: CARBOPLATIN
     Indication: Breast cancer
     Dosage: 240 MILLIGRAM
     Route: 042
     Dates: start: 20171129, end: 20180530
  16. DOCETAXEL [Suspect]
     Active Substance: DOCETAXEL
     Indication: Breast cancer
     Dosage: 100 MILLIGRAM, EVERY 3 WEEKS
     Route: 042
     Dates: start: 20170720, end: 20170720
  17. EPIRUBICIN [Suspect]
     Active Substance: EPIRUBICIN
     Indication: Breast cancer
     Dosage: 45 MILLIGRAM, EVERY 1 WEEK, CUMULATIVE DOSE 12.857142 MG
     Route: 042
     Dates: start: 20180815, end: 20180822

REACTIONS (2)
  - Disease progression [Fatal]
  - Vomiting [Recovered/Resolved]

NARRATIVE: CASE EVENT DATE: 20180813
